FAERS Safety Report 11888100 (Version 1)
Quarter: 2016Q1

REPORT INFORMATION
  Report Type: Spontaneous
  Country: US (occurrence: None)
  Receive Date: 20160104
  Receipt Date: 20160104
  Transmission Date: 20160526
  Serious: No
  Sender: FDA-Public Use
  Company Number: None

PATIENT
  Age: 44 Year
  Sex: Female
  Weight: 80.29 kg

DRUGS (18)
  1. VICTOZA [Concomitant]
     Active Substance: LIRAGLUTIDE
  2. JARDIANCE [Concomitant]
     Active Substance: EMPAGLIFLOZIN
  3. IBUPROFEN. [Concomitant]
     Active Substance: IBUPROFEN
  4. SIMVASTATIN. [Concomitant]
     Active Substance: SIMVASTATIN
  5. FLUOXETINE [Suspect]
     Active Substance: FLUOXETINE HYDROCHLORIDE
     Indication: OBSESSIVE-COMPULSIVE DISORDER
     Dosage: TAKE ONE CAPSULE BY MOUTH DAIL  ONCE DAILY TAKEN BY MOUTH
     Route: 048
     Dates: start: 20151229, end: 20160103
  6. LEVOTHYROXINE. [Concomitant]
     Active Substance: LEVOTHYROXINE
  7. METFORMIN [Concomitant]
     Active Substance: METFORMIN HYDROCHLORIDE
  8. DESLORATADINE. [Concomitant]
     Active Substance: DESLORATADINE
  9. GLUCOSAMINE [Concomitant]
     Active Substance: GLUCOSAMINE
  10. LEVEMIR [Concomitant]
     Active Substance: INSULIN DETEMIR
  11. RESTASIS [Concomitant]
     Active Substance: CYCLOSPORINE
  12. TRAMADOL. [Concomitant]
     Active Substance: TRAMADOL
  13. LISINOPRIL. [Concomitant]
     Active Substance: LISINOPRIL
  14. PROAIR HFA [Concomitant]
     Active Substance: ALBUTEROL SULFATE
  15. PAIN AND INFLAMMATION CREAM SPECIAL MADE CREAM [Concomitant]
  16. MULTIVITAMIN [Concomitant]
     Active Substance: VITAMINS
  17. NEXIUM [Concomitant]
     Active Substance: ESOMEPRAZOLE MAGNESIUM
  18. ARNICARE [Concomitant]
     Active Substance: ARNICA MONTANA

REACTIONS (2)
  - Glycosylated haemoglobin increased [None]
  - Blood glucose increased [None]

NARRATIVE: CASE EVENT DATE: 20160103
